FAERS Safety Report 7653567-4 (Version None)
Quarter: 2011Q3

REPORT INFORMATION
  Report Type: 
  Country: None (occurrence: None)
  Receive Date: 20110803
  Receipt Date: 20110728
  Transmission Date: 20111222
  Serious: Yes (Disabling)
  Sender: FDA-Public Use
  Company Number: PHHY2011GB68675

PATIENT
  Age: 95 Year
  Sex: Male

DRUGS (1)
  1. CIPROFLAXACIN [Suspect]
     Indication: URINARY TRACT INFECTION
     Dosage: 500 MG, BID

REACTIONS (4)
  - TENDON RUPTURE [None]
  - TENDON PAIN [None]
  - FALL [None]
  - JOINT SWELLING [None]
